FAERS Safety Report 10988653 (Version 2)
Quarter: 2015Q2

REPORT INFORMATION
  Report Type: Spontaneous
  Country: US (occurrence: US)
  Receive Date: 20150404
  Receipt Date: 20150525
  Transmission Date: 20150821
  Serious: Yes (Other)
  Sender: FDA-Public Use
  Company Number: US-JNJFOC-20130810551

PATIENT

DRUGS (4)
  1. METHOTREXATE [Suspect]
     Active Substance: METHOTREXATE
     Indication: SARCOIDOSIS
     Route: 065
  2. CORTICOSTEROID [Suspect]
     Active Substance: CORTICOSTEROID NOS
     Indication: SARCOIDOSIS
     Route: 065
  3. INFLIXIMAB, RECOMBINANT [Suspect]
     Active Substance: INFLIXIMAB
     Indication: SARCOIDOSIS
     Route: 042
  4. HYDROXYCHLOROQUINE [Suspect]
     Active Substance: HYDROXYCHLOROQUINE
     Indication: SARCOIDOSIS
     Route: 065

REACTIONS (5)
  - Drug ineffective for unapproved indication [Unknown]
  - Rash [Unknown]
  - Pneumonia [Unknown]
  - Sarcoidosis [Unknown]
  - Infection [Unknown]
